FAERS Safety Report 21762566 (Version 1)
Quarter: 2022Q4

REPORT INFORMATION
  Report Type: Other
  Country: CA (occurrence: CA)
  Receive Date: 20221221
  Receipt Date: 20221221
  Transmission Date: 20230113
  Serious: Yes (Other)
  Sender: FDA-Public Use
  Company Number: CA-APOTEX-2022AP016914

PATIENT
  Age: 65 Year
  Sex: Female

DRUGS (6)
  1. TAMOXIFEN [Suspect]
     Active Substance: TAMOXIFEN
     Indication: Product used for unknown indication
     Dosage: UNK
     Route: 065
  2. VENLAFAXINE [Suspect]
     Active Substance: VENLAFAXINE HYDROCHLORIDE
     Indication: Product used for unknown indication
     Dosage: UNK
     Route: 065
  3. NERLYNX [Suspect]
     Active Substance: NERATINIB
     Indication: Breast cancer metastatic
     Dosage: 120 MILLIGRAM, QD
     Route: 048
  4. NERLYNX [Suspect]
     Active Substance: NERATINIB
     Dosage: 240 MILLIGRAM, QD
     Route: 048
  5. NERLYNX [Suspect]
     Active Substance: NERATINIB
     Dosage: 160 MILLIGRAM, QD
     Route: 048
  6. SYNTHROID [Suspect]
     Active Substance: LEVOTHYROXINE SODIUM
     Indication: Product used for unknown indication
     Dosage: UNK
     Route: 065

REACTIONS (3)
  - Malignant neoplasm progression [Unknown]
  - Off label use [Unknown]
  - Drug ineffective for unapproved indication [Unknown]
